FAERS Safety Report 5134287-7 (Version None)
Quarter: 2006Q4

REPORT INFORMATION
  Report Type: 
  Country: None (occurrence: None)
  Receive Date: 20061019
  Receipt Date: 20060314
  Transmission Date: 20070319
  Serious: Yes (Hospitalization)
  Sender: FDA-Public Use
  Company Number: 06-000271

PATIENT
  Age: 70 Year
  Sex: Female

DRUGS (2)
  1. DOVONEX (CALCIPOTRIOL) OINTMENT, 0.005% [Suspect]
     Indication: PSORIASIS
     Dosage: 0.005%, BID, TOPICAL
     Route: 061
     Dates: start: 20040101
  2. TACLONEX [Suspect]
     Indication: PSORIASIS
     Dosage: BID, TOPICAL
     Route: 061
     Dates: start: 20040801

REACTIONS (2)
  - DRUG HYPERSENSITIVITY [None]
  - ECZEMA [None]
